FAERS Safety Report 9536020 (Version 1)
Quarter: 2013Q2

REPORT INFORMATION
  Report Type: Spontaneous
  Country: US (occurrence: None)
  Receive Date: 20130507
  Receipt Date: 20130507
  Transmission Date: 20140414
  Serious: Yes (Other)
  Sender: FDA-Public Use
  Company Number: PHEH2012US010435

PATIENT
  Age: 58 Year
  Sex: Female
  Weight: 67.1 kg

DRUGS (2)
  1. TASIGNA [Suspect]
     Indication: CHRONIC MYELOID LEUKAEMIA
     Route: 048
     Dates: start: 20120214
  2. TOPROL XL (METOPROLOL SUCCINATE) [Concomitant]

REACTIONS (3)
  - Heart rate irregular [None]
  - Alopecia [None]
  - Rash [None]
